FAERS Safety Report 5162473-9 (Version None)
Quarter: 2006Q4

REPORT INFORMATION
  Report Type: 
  Country: None (occurrence: None)
  Receive Date: 20061129
  Receipt Date: 20061129
  Transmission Date: 20070319
  Serious: Yes (Hospitalization, Disabling)
  Sender: FDA-Public Use
  Company Number: None

PATIENT
  Age: 65 Year
  Sex: Male
  Weight: 93 kg

DRUGS (1)
  1. APROTININ [Suspect]
     Indication: CORONARY ARTERY BYPASS
     Dates: start: 20061003

REACTIONS (3)
  - LEG AMPUTATION [None]
  - RENAL FAILURE ACUTE [None]
  - THROMBOSIS [None]
